FAERS Safety Report 8575374-0 (Version None)
Quarter: 2012Q3

REPORT INFORMATION
  Report Type: 
  Country: None (occurrence: None)
  Receive Date: 20120807
  Receipt Date: 20120731
  Transmission Date: 20120928
  Serious: Yes (Hospitalization)
  Sender: FDA-Public Use
  Company Number: US-PFIZER INC-2012186883

PATIENT
  Sex: Male

DRUGS (4)
  1. CELEBREX [Suspect]
     Indication: PAIN
     Dosage: UNK
     Dates: start: 20120401
  2. METOPROLOL [Concomitant]
     Indication: HEART RATE ABNORMAL
     Dosage: UNK
     Route: 048
  3. PRADAXA [Suspect]
     Indication: ATRIAL FIBRILLATION
     Dosage: 150 MG, 2X/DAY
     Route: 048
     Dates: start: 20111228
  4. CORTISONE [Concomitant]
     Indication: PAIN
     Dosage: THREE INJECTIONS

REACTIONS (12)
  - OEDEMA PERIPHERAL [None]
  - LIPOHYPERTROPHY [None]
  - HEART RATE INCREASED [None]
  - INSOMNIA [None]
  - DYSPEPSIA [None]
  - FAECES DISCOLOURED [None]
  - PAIN IN EXTREMITY [None]
  - MUSCULOSKELETAL PAIN [None]
  - JOINT SWELLING [None]
  - ULCER HAEMORRHAGE [None]
  - DRUG INEFFECTIVE [None]
  - MYALGIA [None]
